FAERS Safety Report 9807082 (Version 1)
Quarter: 2014Q1

REPORT INFORMATION
  Report Type: Report from Study
  Country: US (occurrence: US)
  Receive Date: 20140110
  Receipt Date: 20140110
  Transmission Date: 20141002
  Serious: Yes (Other)
  Sender: FDA-Public Use
  Company Number: US-ROCHE-1328566

PATIENT
  Sex: Female

DRUGS (7)
  1. CLONAZEPAM [Suspect]
     Indication: PRODUCT USED FOR UNKNOWN INDICATION
     Dosage: PRN
     Route: 065
  2. ALTEPLASE [Suspect]
     Indication: PRODUCT USED FOR UNKNOWN INDICATION
     Dosage: INFUSION OF 1MG/HR STARTED AFTER 10MG DOSE
     Route: 065
     Dates: start: 20130415
  3. PROPANOLOL [Concomitant]
     Dosage: Q DAY
     Route: 065
  4. LISINOPRIL [Concomitant]
     Dosage: Q DAY
     Route: 065
  5. ASPIRIN [Concomitant]
  6. CAFFEINE [Concomitant]
  7. CODEINE [Concomitant]

REACTIONS (34)
  - Gastric ulcer [Unknown]
  - Deep vein thrombosis [Unknown]
  - Haemoglobin decreased [Unknown]
  - May-Thurner syndrome [Unknown]
  - Gastric haemorrhage [Unknown]
  - Pain in extremity [Unknown]
  - Back pain [Unknown]
  - Migraine [Unknown]
  - Pyrexia [Unknown]
  - Cold sweat [Unknown]
  - Fatigue [Unknown]
  - Visual acuity reduced [Unknown]
  - Oropharyngeal pain [Unknown]
  - Ear pain [Unknown]
  - Palpitations [Unknown]
  - Dyspnoea [Unknown]
  - Cough [Unknown]
  - Abdominal pain lower [Unknown]
  - Muscular weakness [Unknown]
  - Oedema [Unknown]
  - Hypokalaemia [Unknown]
  - Pulse abnormal [Unknown]
  - Liver scan abnormal [Unknown]
  - Local swelling [Unknown]
  - Bradycardia [Unknown]
  - Rash maculo-papular [Unknown]
  - Cyanosis [Unknown]
  - Generalised oedema [Unknown]
  - Peptic ulcer [Unknown]
  - Musculoskeletal pain [Unknown]
  - Oesophageal stenosis [Unknown]
  - Chest pain [Unknown]
  - Vomiting [Unknown]
  - Oedema peripheral [Unknown]
